FAERS Safety Report 14242992 (Version 7)
Quarter: 2018Q2

REPORT INFORMATION
  Report Type: Spontaneous
  Country: GB (occurrence: GB)
  Receive Date: 20171201
  Receipt Date: 20180622
  Transmission Date: 20180711
  Serious: Yes (Other)
  Sender: FDA-Public Use
  Company Number: GB-JNJFOC-20171132312

PATIENT
  Age: 63 Year
  Sex: Female
  Weight: 76 kg

DRUGS (25)
  1. FENTANYL CITRATE. [Suspect]
     Active Substance: FENTANYL CITRATE
     Indication: SPINAL ANAESTHESIA
     Route: 037
     Dates: start: 20171031, end: 20171031
  2. LONGTEC [Interacting]
     Active Substance: OXYCODONE HYDROCHLORIDE
     Indication: PAIN
     Route: 048
  3. ZOMORPH [Suspect]
     Active Substance: MORPHINE SULFATE
     Indication: PREMEDICATION
     Route: 048
     Dates: start: 20171031, end: 20171031
  4. TRANEXAMIC ACID. [Concomitant]
     Active Substance: TRANEXAMIC ACID
     Indication: HAEMORRHAGE PROPHYLAXIS
     Route: 042
     Dates: start: 20171031, end: 20171031
  5. BISOXATINE [Concomitant]
     Route: 002
  6. GENTAMICIN. [Concomitant]
     Active Substance: GENTAMICIN
     Indication: INFECTION PROPHYLAXIS
     Route: 042
     Dates: start: 20171031, end: 20171031
  7. LONGTEC [Interacting]
     Active Substance: OXYCODONE HYDROCHLORIDE
     Indication: PREMEDICATION
     Route: 048
  8. LONGTEC [Interacting]
     Active Substance: OXYCODONE HYDROCHLORIDE
     Indication: PAIN
     Route: 048
     Dates: start: 20171031, end: 20171031
  9. PARACETAMOL [Concomitant]
     Active Substance: ACETAMINOPHEN
     Indication: PAIN
     Route: 048
  10. GABAPENTIN. [Concomitant]
     Active Substance: GABAPENTIN
     Indication: PREMEDICATION
     Route: 048
     Dates: start: 20171031, end: 20171031
  11. BUCCASTEM [Concomitant]
     Active Substance: PROCHLORPERAZINE MALEATE
     Indication: PREMEDICATION
     Route: 002
     Dates: start: 20171031, end: 20171031
  12. FENTANYL. [Suspect]
     Active Substance: FENTANYL
     Indication: SPINAL ANAESTHESIA
     Route: 062
     Dates: start: 20171031, end: 20171031
  13. MARCAIN HEAVY [Suspect]
     Active Substance: BUPIVACAINE HYDROCHLORIDE
     Indication: SPINAL ANAESTHESIA
     Route: 037
     Dates: start: 20171031, end: 20171031
  14. MIDAZOLAM [Interacting]
     Active Substance: MIDAZOLAM HYDROCHLORIDE
     Indication: SEDATION
     Route: 042
     Dates: start: 20171031, end: 20171031
  15. COCODAMOL [Interacting]
     Active Substance: ACETAMINOPHEN\CODEINE PHOSPHATE
     Indication: PRODUCT USED FOR UNKNOWN INDICATION
     Route: 065
  16. PARACETAMOL [Concomitant]
     Active Substance: ACETAMINOPHEN
     Indication: PAIN
     Route: 048
     Dates: start: 20171031, end: 20171031
  17. MIDAZOLAM [Interacting]
     Active Substance: MIDAZOLAM HYDROCHLORIDE
     Indication: SEDATION
     Route: 042
     Dates: start: 20171031, end: 20171031
  18. PARACETAMOL [Concomitant]
     Active Substance: ACETAMINOPHEN
     Indication: PREMEDICATION
     Route: 048
     Dates: start: 20171031, end: 20171031
  19. MIDAZOLAM [Interacting]
     Active Substance: MIDAZOLAM HYDROCHLORIDE
     Indication: SEDATION
     Route: 042
     Dates: start: 20171031, end: 20171031
  20. ZOMORPH [Suspect]
     Active Substance: MORPHINE SULFATE
     Indication: PREMEDICATION
     Route: 048
  21. CEFUROXIME. [Concomitant]
     Active Substance: CEFUROXIME
     Indication: INFECTION PROPHYLAXIS
     Route: 042
     Dates: start: 20171031, end: 20171031
  22. LONGTEC [Interacting]
     Active Substance: OXYCODONE HYDROCHLORIDE
     Indication: PREMEDICATION
     Route: 048
     Dates: start: 20171031, end: 20171031
  23. TEICOPLANIN [Concomitant]
     Active Substance: TEICOPLANIN
     Indication: INFECTION PROPHYLAXIS
     Route: 042
     Dates: start: 20171031, end: 20171031
  24. PARACETAMOL [Concomitant]
     Active Substance: ACETAMINOPHEN
     Indication: PREMEDICATION
     Route: 048
  25. BUPIVACAINE W/EPINEPHRINE [Concomitant]
     Active Substance: BUPIVACAINE\EPINEPHRINE
     Indication: LOCAL ANAESTHESIA
     Route: 058
     Dates: start: 20171031, end: 20171031

REACTIONS (5)
  - Drug effect variable [Recovered/Resolved]
  - Incorrect route of drug administration [Unknown]
  - Off label use [Unknown]
  - Hyperaesthesia [Recovered/Resolved]
  - Drug interaction [Recovered/Resolved]

NARRATIVE: CASE EVENT DATE: 20171031
